FAERS Safety Report 6658774-5 (Version None)
Quarter: 2010Q1

REPORT INFORMATION
  Report Type: 
  Country: None (occurrence: None)
  Receive Date: 20100330
  Receipt Date: 20100324
  Transmission Date: 20100710
  Serious: Yes (Hospitalization)
  Sender: FDA-Public Use
  Company Number: PHHO2010DE04618

PATIENT
  Sex: Male
  Weight: 44 kg

DRUGS (2)
  1. CERTICAN [Suspect]
     Indication: LIVER TRANSPLANT
     Dosage: 3 MG, BID
     Route: 048
  2. TACROLIMUS [Suspect]
     Indication: LIVER TRANSPLANT
     Dosage: 4.5 MG, BID
     Route: 048

REACTIONS (2)
  - COLITIS [None]
  - DIARRHOEA [None]
